FAERS Safety Report 10652250 (Version 1)
Quarter: 2014Q4

REPORT INFORMATION
  Report Type: Spontaneous
  Country: US (occurrence: None)
  Receive Date: 20141212
  Receipt Date: 20141212
  Transmission Date: 20150529
  Serious: No
  Sender: FDA-Public Use
  Company Number: None

PATIENT
  Age: 43 Year
  Sex: Female
  Weight: 83.92 kg

DRUGS (1)
  1. REMICADE [Suspect]
     Active Substance: INFLIXIMAB
     Indication: COLITIS ULCERATIVE
     Dosage: EVERY 6 WKS INTO A VEIN

REACTIONS (8)
  - Oral pain [None]
  - Gingival bleeding [None]
  - Gingival pain [None]
  - Glossodynia [None]
  - Arthralgia [None]
  - Nasopharyngitis [None]
  - Burning sensation [None]
  - Lip pain [None]
